FAERS Safety Report 4394868-5 (Version None)
Quarter: 2004Q3

REPORT INFORMATION
  Report Type: 
  Country: None (occurrence: None)
  Receive Date: 20040707
  Receipt Date: 20031027
  Transmission Date: 20050211
  Serious: Yes (Other)
  Sender: FDA-Public Use
  Company Number: TEST00303002809

PATIENT
  Age: 66 Year
  Sex: Male

DRUGS (1)
  1. TESTOSTERONE [Suspect]
     Indication: ANDROGEN THERAPY
     Dosage: UNK DAILY TD
     Route: 062
     Dates: start: 20030520, end: 20030620

REACTIONS (4)
  - BLOOD TESTOSTERONE FREE INCREASED [None]
  - BLOOD TESTOSTERONE INCREASED [None]
  - BREAST PAIN [None]
  - CEREBROVASCULAR ACCIDENT [None]
